FAERS Safety Report 13953814 (Version 1)
Quarter: 2017Q3

REPORT INFORMATION
  Report Type: Spontaneous
  Country: US (occurrence: US)
  Receive Date: 20170908
  Receipt Date: 20170908
  Transmission Date: 20171128
  Serious: Yes (Death, Life-Threatening, Hospitalization)
  Sender: FDA-Public Use
  Company Number: None

PATIENT
  Age: 58 Year
  Sex: Female
  Weight: 71.1 kg

DRUGS (4)
  1. LISINOPRIL. [Concomitant]
     Active Substance: LISINOPRIL
  2. ASPIRIN 81 MG [Concomitant]
     Active Substance: ASPIRIN
  3. ALTEPLASE. [Suspect]
     Active Substance: ALTEPLASE
     Indication: CEREBROVASCULAR ACCIDENT
     Dosage: ?          OTHER FREQUENCY:ONE DOSE;?
     Route: 042
     Dates: start: 20170425, end: 20170425
  4. DILTIAZEM 24 HR ER [Concomitant]

REACTIONS (4)
  - Cerebral haemorrhage [None]
  - Headache [None]
  - Depressed level of consciousness [None]
  - Dysarthria [None]

NARRATIVE: CASE EVENT DATE: 20170425
